FAERS Safety Report 6871391-7 (Version None)
Quarter: 2010Q3

REPORT INFORMATION
  Report Type: 
  Country: None (occurrence: None)
  Receive Date: 20100723
  Receipt Date: 20100712
  Transmission Date: 20110219
  Serious: Yes (Hospitalization, Other)
  Sender: FDA-Public Use
  Company Number: US-PFIZER INC-2009235611

PATIENT
  Sex: Male

DRUGS (1)
  1. CHANTIX [Suspect]
     Indication: SMOKING CESSATION THERAPY
     Dosage: 0.5MG AND 1MG
     Route: 048
     Dates: start: 20080529, end: 20080703

REACTIONS (6)
  - BACK PAIN [None]
  - CHEST DISCOMFORT [None]
  - INTERVERTEBRAL DISC COMPRESSION [None]
  - LOSS OF CONSCIOUSNESS [None]
  - RIB FRACTURE [None]
  - ROAD TRAFFIC ACCIDENT [None]
